FAERS Safety Report 6182552-7 (Version None)
Quarter: 2009Q2

REPORT INFORMATION
  Report Type: 
  Country: None (occurrence: None)
  Receive Date: 20090507
  Receipt Date: 20090427
  Transmission Date: 20091009
  Serious: Yes (Hospitalization, Other)
  Sender: FDA-Public Use
  Company Number: GB-PFIZER INC-2009173181

PATIENT

DRUGS (13)
  1. BLINDED *PLACEBO [Suspect]
     Indication: CARDIAC FAILURE
     Dosage: 25 MG, 1X/DAY
     Route: 048
     Dates: start: 20081022
  2. BLINDED EPLERENONE [Suspect]
     Indication: CARDIAC FAILURE
     Dosage: 25 MG, 1X/DAY
     Route: 048
     Dates: start: 20081022
  3. LEVOTHYROXINE SODIUM [Concomitant]
     Dosage: 100 UG, 1X/DAY
     Dates: start: 20071011
  4. FERROUS GLUCONATE [Concomitant]
     Dosage: 300 MG, DAILY
     Dates: start: 20040806
  5. BUMETANIDE [Concomitant]
     Dosage: 2 MG, DAILY
     Dates: start: 20001127
  6. RAMIPRIL [Concomitant]
     Dosage: 10 MG, DAILY
     Dates: start: 20021009
  7. WARFARIN [Concomitant]
     Dosage: 5 MG, DAILY
     Dates: start: 19980602, end: 20090213
  8. WARFARIN [Concomitant]
     Dosage: UNK
     Dates: start: 20090222
  9. DIGOXIN [Concomitant]
     Dosage: 62.5 UG, DAILY
     Dates: start: 20080606
  10. ALLOPURINOL [Concomitant]
     Dosage: 100 MG, DAILY
     Dates: start: 20060718
  11. CANDESARTAN [Concomitant]
     Dosage: 4 MG, DAILY
     Dates: start: 20080603
  12. CLONAZEPAM [Concomitant]
     Dosage: 10 MG, DAILY
     Dates: start: 20060821
  13. OMACOR [Concomitant]
     Dosage: 1000 MG, DAILY
     Dates: start: 20080501

REACTIONS (1)
  - TRANSIENT ISCHAEMIC ATTACK [None]
